FAERS Safety Report 8978203 (Version 2)
Quarter: 2014Q2

REPORT INFORMATION
  Report Type: Spontaneous
  Country: CO (occurrence: CO)
  Receive Date: 20121221
  Receipt Date: 20140611
  Transmission Date: 20141212
  Serious: Yes (Other)
  Sender: FDA-Public Use
  Company Number: CO-PFIZER INC-2012321859

PATIENT
  Age: 13 Year
  Sex: Male

DRUGS (2)
  1. GENOTROPIN [Suspect]
     Indication: BODY HEIGHT BELOW NORMAL
     Dosage: 1.8 MG, 1X/DAY
     Route: 058
     Dates: start: 201210, end: 2013
  2. NAPROXEN [Concomitant]
     Indication: HEADACHE
     Dosage: 250 MG, 1X/DAY
     Route: 048
     Dates: start: 20121214

REACTIONS (5)
  - Road traffic accident [Recovering/Resolving]
  - Head injury [Recovering/Resolving]
  - Amnesia [Recovering/Resolving]
  - Dizziness [Recovered/Resolved]
  - Off label use [Unknown]
